FAERS Safety Report 20641876 (Version 1)
Quarter: 2022Q1

REPORT INFORMATION
  Report Type: Spontaneous
  Country: US (occurrence: US)
  Receive Date: 20220328
  Receipt Date: 20220328
  Transmission Date: 20220424
  Serious: Yes (Death, Other)
  Sender: FDA-Public Use
  Company Number: US-AMGEN-USASP2022052181

PATIENT

DRUGS (2)
  1. FILGRASTIM [Suspect]
     Active Substance: FILGRASTIM
     Indication: Haematopoietic stem cell mobilisation
     Dosage: UNK
     Route: 065
  2. MELPHALAN [Concomitant]
     Active Substance: MELPHALAN
     Dosage: 200 MILLIGRAM/SQ. METER

REACTIONS (12)
  - Death [Fatal]
  - Myelodysplastic syndrome [Fatal]
  - Cutaneous T-cell lymphoma [Fatal]
  - Acute myeloid leukaemia [Fatal]
  - Acute lymphocytic leukaemia [Fatal]
  - Renal cancer [Fatal]
  - Anal cancer [Fatal]
  - Colon cancer [Fatal]
  - Malignant melanoma [Fatal]
  - Sarcoma [Fatal]
  - Plasma cell myeloma [Fatal]
  - Bacterial infection [Fatal]
